FAERS Safety Report 8028509-2 (Version None)
Quarter: 2012Q1

REPORT INFORMATION
  Report Type: 
  Country: None (occurrence: None)
  Receive Date: 20120104
  Receipt Date: 20111219
  Transmission Date: 20120608
  Serious: Yes (Other)
  Sender: FDA-Public Use
  Company Number: 2012SP000114

PATIENT
  Age: 82 Year
  Sex: Female

DRUGS (3)
  1. CLARITIN [Suspect]
     Dosage: 1 DF
     Dates: start: 20111013, end: 20111013
  2. TORADOL [Suspect]
     Dosage: 1 DF
     Dates: start: 20111013, end: 20111013
  3. LIORESAL [Suspect]
     Dosage: 1 DF
     Dates: start: 20111013, end: 20111013

REACTIONS (2)
  - SOPOR [None]
  - CONFUSIONAL STATE [None]
